FAERS Safety Report 5127172-8 (Version None)
Quarter: 2006Q4

REPORT INFORMATION
  Report Type: 
  Country: None (occurrence: None)
  Receive Date: 20061013
  Receipt Date: 20060728
  Transmission Date: 20070319
  Serious: Yes (Other)
  Sender: FDA-Public Use
  Company Number: US-AMGEN-KDL188338

PATIENT
  Sex: Female
  Weight: 80.8 kg

DRUGS (11)
  1. ENBREL [Suspect]
     Indication: RHEUMATOID ARTHRITIS
     Route: 058
     Dates: start: 20021218
  2. PREDNISONE TAB [Concomitant]
     Route: 048
  3. CELEBREX [Concomitant]
  4. FLONASE [Concomitant]
     Route: 045
  5. METHOTREXATE [Concomitant]
  6. ASPIRIN [Concomitant]
  7. ALLEGRA [Concomitant]
  8. ZOLOFT [Concomitant]
  9. ATIVAN [Concomitant]
  10. CALCIUM GLUCONATE [Concomitant]
  11. CORTICOSTEROID NOS [Concomitant]

REACTIONS (8)
  - ABORTION SPONTANEOUS [None]
  - ARTHRALGIA [None]
  - DRUG EXPOSURE DURING PREGNANCY [None]
  - FATIGUE [None]
  - JOINT SWELLING [None]
  - MUSCULOSKELETAL STIFFNESS [None]
  - PAIN IN EXTREMITY [None]
  - PREGNANCY [None]
